FAERS Safety Report 5806580-3 (Version None)
Quarter: 2008Q3

REPORT INFORMATION
  Report Type: 
  Country: None (occurrence: None)
  Receive Date: 20080710
  Receipt Date: 20080627
  Transmission Date: 20090109
  Serious: Yes (Hospitalization)
  Sender: FDA-Public Use
  Company Number: PHHY2008FR12524

PATIENT

DRUGS (4)
  1. FEMARA [Suspect]
     Indication: NEOPLASM MALIGNANT
     Dosage: UNK
     Dates: start: 20080301
  2. LEVOTHYROX [Concomitant]
  3. SOTALOL HCL [Concomitant]
  4. ASPEGIC 325 [Concomitant]
     Indication: CARDIOVASCULAR EVENT PROPHYLAXIS

REACTIONS (7)
  - FATIGUE [None]
  - LEUKOPENIA [None]
  - OEDEMA [None]
  - PLATELET COUNT DECREASED [None]
  - PULMONARY OEDEMA [None]
  - SPLENOMEGALY [None]
  - WEIGHT INCREASED [None]
